FAERS Safety Report 10375169 (Version 1)
Quarter: 2014Q3

REPORT INFORMATION
  Report Type: Spontaneous
  Country: US (occurrence: None)
  Receive Date: 20140808
  Receipt Date: 20140808
  Transmission Date: 20150326
  Serious: No
  Sender: FDA-Public Use
  Company Number: None

PATIENT
  Age: 44 Year
  Sex: Female
  Weight: 63.5 kg

DRUGS (1)
  1. METHYLPHENIDATE ER [Suspect]
     Active Substance: METHYLPHENIDATE
     Indication: ATTENTION DEFICIT/HYPERACTIVITY DISORDER
     Dosage: 1 PILL ONCE DAILY TAKEN BY MOUTH
     Route: 048
     Dates: start: 20140501, end: 20140601

REACTIONS (5)
  - Anxiety [None]
  - Therapeutic response changed [None]
  - No therapeutic response [None]
  - Product substitution issue [None]
  - Mood swings [None]

NARRATIVE: CASE EVENT DATE: 20140601
